FAERS Safety Report 5910313-X (Version None)
Quarter: 2008Q4

REPORT INFORMATION
  Report Type: 
  Country: None (occurrence: None)
  Receive Date: 20081007
  Receipt Date: 20071120
  Transmission Date: 20090506
  Serious: No
  Sender: FDA-Public Use
  Company Number: US-ASTRAZENECA-2007UW26776

PATIENT
  Age: 64 Year
  Sex: Female
  Weight: 46.3 kg

DRUGS (3)
  1. ARIMIDEX [Suspect]
     Route: 048
     Dates: start: 20040701
  2. FOSAMAX [Concomitant]
  3. OSCAL [Concomitant]

REACTIONS (1)
  - HAIR GROWTH ABNORMAL [None]
